FAERS Safety Report 8492720-7 (Version None)
Quarter: 2012Q3

REPORT INFORMATION
  Report Type: 
  Country: None (occurrence: None)
  Receive Date: 20120706
  Receipt Date: 20120629
  Transmission Date: 20120928
  Serious: Yes (Other)
  Sender: FDA-Public Use
  Company Number: JP-PFIZER INC-2012098616

PATIENT
  Age: 84 Year
  Sex: Male

DRUGS (2)
  1. FLUCONAZOLE [Suspect]
     Indication: CANDIDIASIS
  2. ITRACONAZOLE [Suspect]
     Indication: CANDIDIASIS
     Dosage: 200 MG, 1X/DAY
     Route: 048

REACTIONS (2)
  - RENAL DISORDER [None]
  - CANDIDA ENDOPHTHALMITIS [None]
